FAERS Safety Report 13275770 (Version 2)
Quarter: 2017Q1

REPORT INFORMATION
  Report Type: Other
  Country: TR (occurrence: TR)
  Receive Date: 20170228
  Receipt Date: 20170320
  Transmission Date: 20170428
  Serious: Yes (Other)
  Sender: FDA-Public Use
  Company Number: TR-ACTELION-A-CH2017-150037

PATIENT
  Age: 26 Year
  Sex: Female

DRUGS (2)
  1. ZAVESCA [Suspect]
     Active Substance: MIGLUSTAT
     Indication: GAUCHER^S DISEASE TYPE I
     Dosage: 300 MG, OD
     Route: 048
  2. CEREZYME [Concomitant]
     Active Substance: IMIGLUCERASE

REACTIONS (4)
  - Multiple fractures [Unknown]
  - Bone pain [Unknown]
  - Bone infarction [Unknown]
  - Osteonecrosis [Unknown]
